FAERS Safety Report 4462165-5 (Version None)
Quarter: 2004Q3

REPORT INFORMATION
  Report Type: 
  Country: None (occurrence: None)
  Receive Date: 20040924
  Receipt Date: 20040909
  Transmission Date: 20050211
  Serious: Yes (Hospitalization)
  Sender: FDA-Public Use
  Company Number: 237671

PATIENT
  Age: 72 Year
  Sex: Male
  Weight: 102 kg

DRUGS (9)
  1. NOVOSEVEN [Suspect]
     Indication: ACQUIRED HAEMOPHILIA WITH ANTI FVIII, XI, OR XIII
     Dosage: SEE IMAGE
     Route: 042
     Dates: start: 20040317, end: 20040402
  2. NOVOSEVEN [Suspect]
     Indication: ACQUIRED HAEMOPHILIA WITH ANTI FVIII, XI, OR XIII
     Dosage: SEE IMAGE
     Route: 042
     Dates: start: 20040402
  3. CYKLOKAPRON [Concomitant]
  4. PERIPLASMAL (XYLITOL, AMINO ACIDS NOS, ELECTROLYTES NOS, SORBITOL) [Concomitant]
  5. CARVEDILOL [Concomitant]
  6. MCP ^ALIUD PHARMA^ (METOCLOPRAMIDE HYDROCHLORIDE) [Concomitant]
  7. BERLINSULIN (INSULIN HUMAN INJECTION, ISOPHANE) [Concomitant]
  8. ACTRAPHANE 50 NOVOLET (INSULIN HUMAN) [Concomitant]
  9. ACETYLCYSTEINE [Concomitant]

REACTIONS (3)
  - ANAEMIA [None]
  - HYPERTENSIVE CRISIS [None]
  - MYOCARDIAL INFARCTION [None]
